FAERS Safety Report 16837088 (Version 2)
Quarter: 2019Q4

REPORT INFORMATION
  Report Type: Spontaneous
  Country: US (occurrence: US)
  Receive Date: 20190923
  Receipt Date: 20191127
  Transmission Date: 20200122
  Serious: No
  Sender: FDA-Public Use
  Company Number: US-BIOGEN-2019BI00787845

PATIENT
  Age: 66 Year
  Sex: Female

DRUGS (1)
  1. TECFIDERA [Suspect]
     Active Substance: DIMETHYL FUMARATE
     Indication: MULTIPLE SCLEROSIS
     Route: 048

REACTIONS (5)
  - Infection [Unknown]
  - White blood cell count decreased [Unknown]
  - Alopecia [Unknown]
  - Abdominal discomfort [Unknown]
  - Lymphopenia [Unknown]

NARRATIVE: CASE EVENT DATE: 20190918
